FAERS Safety Report 19998000 (Version 1)
Quarter: 2021Q4

REPORT INFORMATION
  Report Type: Spontaneous
  Country: US (occurrence: US)
  Receive Date: 20211026
  Receipt Date: 20211026
  Transmission Date: 20220304
  Serious: Yes (Other)
  Sender: FDA-Public Use
  Company Number: US-APOTEX-2021AP044570

PATIENT
  Age: 58 Year
  Sex: Female

DRUGS (1)
  1. ACETAMINOPHEN [Suspect]
     Active Substance: ACETAMINOPHEN
     Indication: Analgesic therapy
     Dosage: UNK
     Route: 065

REACTIONS (8)
  - Accidental overdose [Unknown]
  - Toxicity to various agents [Unknown]
  - Pancreatitis [Unknown]
  - Hepatic encephalopathy [Unknown]
  - Hepatorenal syndrome [Unknown]
  - Drug level increased [Recovered/Resolved]
  - Coagulopathy [Unknown]
  - Drug-induced liver injury [Unknown]
